FAERS Safety Report 6906268-1 (Version None)
Quarter: 2010Q3

REPORT INFORMATION
  Report Type: 
  Country: None (occurrence: None)
  Receive Date: 20100804
  Receipt Date: 20100730
  Transmission Date: 20110219
  Serious: Yes (Other)
  Sender: FDA-Public Use
  Company Number: US-BRISTOL-MYERS SQUIBB COMPANY-15219413

PATIENT
  Age: 47 Year
  Sex: Female

DRUGS (2)
  1. ONGLYZA [Suspect]
     Dates: start: 20100101, end: 20100101
  2. METFORMIN HCL [Suspect]

REACTIONS (2)
  - PYELONEPHRITIS [None]
  - URINARY TRACT INFECTION [None]
